FAERS Safety Report 15937117 (Version 1)
Quarter: 2019Q1

REPORT INFORMATION
  Report Type: Spontaneous
  Country: US (occurrence: US)
  Receive Date: 20190208
  Receipt Date: 20190208
  Transmission Date: 20190417
  Serious: No
  Sender: FDA-Public Use
  Company Number: US-EMD SERONO-7113152

PATIENT
  Sex: Female
  Weight: 77 kg

DRUGS (1)
  1. REBIF [Suspect]
     Active Substance: INTERFERON BETA-1A
     Indication: MULTIPLE SCLEROSIS
     Route: 058
     Dates: start: 20050622

REACTIONS (8)
  - Dysuria [Not Recovered/Not Resolved]
  - Injection site nodule [Unknown]
  - Injection site induration [Unknown]
  - Injection site indentation [Not Recovered/Not Resolved]
  - Injection site scar [Unknown]
  - Constipation [Not Recovered/Not Resolved]
  - Injection site ulcer [Unknown]
  - Injection site necrosis [Unknown]

NARRATIVE: CASE EVENT DATE: 2010
